FAERS Safety Report 25778304 (Version 1)
Quarter: 2025Q3

REPORT INFORMATION
  Report Type: Spontaneous
  Country: JP (occurrence: JP)
  Receive Date: 20250909
  Receipt Date: 20250909
  Transmission Date: 20251020
  Serious: Yes (Death, Other)
  Sender: MICRO LABS
  Company Number: JP-862174955-ML2025-04454

PATIENT
  Sex: Female
  Weight: 43 kg

DRUGS (1)
  1. CAFFEINE [Suspect]
     Active Substance: CAFFEINE
     Indication: Product used for unknown indication

REACTIONS (11)
  - Completed suicide [Fatal]
  - Toxicity to various agents [Fatal]
  - Overdose [Fatal]
  - Cerebral congestion [Fatal]
  - Brain oedema [Fatal]
  - Brain injury [Fatal]
  - Myocardial haemorrhage [Fatal]
  - Respiratory failure [Fatal]
  - Pneumothorax [Fatal]
  - Dehydration [Fatal]
  - Vomiting [Fatal]
